FAERS Safety Report 4478795-0 (Version None)
Quarter: 2004Q4

REPORT INFORMATION
  Report Type: 
  Country: None (occurrence: None)
  Receive Date: 20041014
  Receipt Date: 20041005
  Transmission Date: 20050328
  Serious: Yes (Other)
  Sender: FDA-Public Use
  Company Number: 200420772BWH

PATIENT
  Age: 39 Year
  Sex: Male

DRUGS (6)
  1. LEVITRA [Suspect]
     Indication: ERECTILE DYSFUNCTION
     Dosage: SEE IMAGE
     Route: 048
  2. AVANDIA [Concomitant]
  3. METFORMIN HCL [Concomitant]
  4. ALTACE [Concomitant]
  5. LIPITOR [Concomitant]
  6. CIALIS [Concomitant]

REACTIONS (2)
  - DIABETES MELLITUS NON-INSULIN-DEPENDENT [None]
  - DRUG INEFFECTIVE [None]
